FAERS Safety Report 14034184 (Version 1)
Quarter: 2017Q4

REPORT INFORMATION
  Report Type: Spontaneous
  Country: US (occurrence: US)
  Receive Date: 20171003
  Receipt Date: 20171003
  Transmission Date: 20180321
  Serious: No
  Sender: FDA-Public Use
  Company Number: US-TEVA-731460ACC

PATIENT
  Sex: Male

DRUGS (1)
  1. CLONAZEPAM. [Suspect]
     Active Substance: CLONAZEPAM
     Indication: MANIA
     Route: 065

REACTIONS (3)
  - Product use in unapproved indication [Unknown]
  - Reaction to excipient [Unknown]
  - Therapeutic response unexpected [Unknown]
